FAERS Safety Report 11421462 (Version 1)
Quarter: 2015Q3

REPORT INFORMATION
  Report Type: Spontaneous
  Country: US (occurrence: US)
  Receive Date: 20150826
  Receipt Date: 20150826
  Transmission Date: 20151125
  Serious: No
  Sender: FDA-Public Use
  Company Number: US-LUNDBECK-DKLU2002273

PATIENT
  Sex: Female

DRUGS (2)
  1. SABRIL [Suspect]
     Active Substance: VIGABATRIN
     Indication: ACUTE KIDNEY INJURY
     Route: 048
     Dates: start: 20150224
  2. SABRIL [Suspect]
     Active Substance: VIGABATRIN
     Indication: RENAL TUBULAR NECROSIS

REACTIONS (1)
  - Muscle twitching [Unknown]
